FAERS Safety Report 8428001-7 (Version None)
Quarter: 2012Q2

REPORT INFORMATION
  Report Type: 
  Country: None (occurrence: None)
  Receive Date: 20120611
  Receipt Date: 20120602
  Transmission Date: 20120825
  Serious: Yes (Hospitalization)
  Sender: FDA-Public Use
  Company Number: BR-ASTRAZENECA-2012SE37425

PATIENT
  Age: 46 Year
  Sex: Male
  Weight: 73 kg

DRUGS (3)
  1. DIOVAN [Concomitant]
  2. ASPIRIN [Concomitant]
  3. CRESTOR [Suspect]
     Indication: VENOUS OCCLUSION
     Route: 048

REACTIONS (3)
  - VASCULAR OCCLUSION [None]
  - CHEST PAIN [None]
  - DRUG INEFFECTIVE [None]
